FAERS Safety Report 11484198 (Version 1)
Quarter: 2015Q3

REPORT INFORMATION
  Report Type: Spontaneous
  Country: US (occurrence: US)
  Receive Date: 20150903
  Receipt Date: 20150903
  Transmission Date: 20151125
  Serious: Yes (Other)
  Sender: FDA-Public Use
  Company Number: US-ELI_LILLY_AND_COMPANY-US201208001452

PATIENT
  Sex: Female

DRUGS (3)
  1. NUVIGIL [Interacting]
     Active Substance: ARMODAFINIL
  2. CYMBALTA [Suspect]
     Active Substance: DULOXETINE HYDROCHLORIDE
     Indication: DEPRESSION
     Dosage: 60 MG, UNKNOWN
  3. ZOMIG [Interacting]
     Active Substance: ZOLMITRIPTAN
     Dosage: 2.5 MG, SINGLE

REACTIONS (4)
  - Serotonin syndrome [Recovered/Resolved]
  - Drug interaction [Recovered/Resolved]
  - Tremor [Unknown]
  - Drug interaction [Unknown]
